FAERS Safety Report 7573548-9 (Version None)
Quarter: 2011Q2

REPORT INFORMATION
  Report Type: 
  Country: None (occurrence: None)
  Receive Date: 20110627
  Receipt Date: 20110622
  Transmission Date: 20111010
  Serious: Yes (Hospitalization)
  Sender: FDA-Public Use
  Company Number: US-SANOFI-AVENTIS-2011SA039844

PATIENT
  Age: 87 Year
  Sex: Female

DRUGS (3)
  1. WELLBUTRIN [Concomitant]
  2. OMEPRAZOLE [Concomitant]
  3. PLAVIX [Suspect]
     Indication: ARRHYTHMIA
     Route: 065
     Dates: start: 20110601

REACTIONS (3)
  - DEMENTIA [None]
  - STEVENS-JOHNSON SYNDROME [None]
  - URTICARIA [None]
